FAERS Safety Report 26089262 (Version 1)
Quarter: 2025Q4

REPORT INFORMATION
  Report Type: Spontaneous
  Country: US (occurrence: US)
  Receive Date: 20251125
  Receipt Date: 20251125
  Transmission Date: 20260118
  Serious: No
  Sender: SANOFI AVENTIS
  Company Number: US-SA-2025SA350711

PATIENT
  Sex: Male
  Weight: 93.18 kg

DRUGS (28)
  1. DUPIXENT [Suspect]
     Active Substance: DUPILUMAB
     Indication: Dermatitis atopic
     Dosage: 300 MG, QOW
     Route: 058
  2. VITAMIN D3 [Concomitant]
     Active Substance: CHOLECALCIFEROL
  3. ACETAMINOPHEN\HYDROCODONE [Concomitant]
     Active Substance: ACETAMINOPHEN\HYDROCODONE
  4. ESOMEPRAZOLE MAGNESIUM [Concomitant]
     Active Substance: ESOMEPRAZOLE MAGNESIUM
  5. TRAMADOL HCL [Concomitant]
     Active Substance: TRAMADOL HYDROCHLORIDE
  6. SERTRALINE HYDROCHLORIDE [Concomitant]
     Active Substance: SERTRALINE HYDROCHLORIDE
  7. XARELTO [Concomitant]
     Active Substance: RIVAROXABAN
  8. PRAZOSIN HYDROCHLORIDE [Concomitant]
     Active Substance: PRAZOSIN HYDROCHLORIDE
  9. MIRALAX [Concomitant]
     Active Substance: POLYETHYLENE GLYCOL 3350
  10. ONDANSETRON [Concomitant]
     Active Substance: ONDANSETRON
  11. LEVOTHYROXINE SODIUM [Concomitant]
     Active Substance: LEVOTHYROXINE SODIUM
  12. CULTURELLE [Concomitant]
     Active Substance: LACTOBACILLUS RHAMNOSUS
  13. KETOCONAZOLE [Concomitant]
     Active Substance: KETOCONAZOLE
  14. HUMALOG [Concomitant]
     Active Substance: INSULIN LISPRO
  15. TRESIBA [Concomitant]
     Active Substance: INSULIN DEGLUDEC
  16. HYDRALAZINE HCL [Concomitant]
     Active Substance: HYDRALAZINE HYDROCHLORIDE
  17. GENTAMICIN SULFATE [Concomitant]
     Active Substance: GENTAMICIN SULFATE
  18. GABAPENTIN [Concomitant]
     Active Substance: GABAPENTIN
  19. FINASTERIDE [Concomitant]
     Active Substance: FINASTERIDE
  20. FAMOTIDINE [Concomitant]
     Active Substance: FAMOTIDINE
  21. EZETIMIBE [Concomitant]
     Active Substance: EZETIMIBE
  22. CLOBETASOL PROPIONATE [Concomitant]
     Active Substance: CLOBETASOL PROPIONATE
  23. CLONIDINE HYDROCHLORIDE [Concomitant]
     Active Substance: CLONIDINE HYDROCHLORIDE
  24. CARVEDILOL [Concomitant]
     Active Substance: CARVEDILOL
  25. BUMETANIDE [Concomitant]
     Active Substance: BUMETANIDE
  26. ATORVASTATIN CALCIUM [Concomitant]
     Active Substance: ATORVASTATIN CALCIUM
  27. ALLOPURINOL [Concomitant]
     Active Substance: ALLOPURINOL
  28. VITAMINS [Concomitant]
     Active Substance: VITAMINS

REACTIONS (3)
  - Streptococcal infection [Unknown]
  - Toothache [Unknown]
  - Pruritus [Unknown]
